FAERS Safety Report 4400836-7 (Version None)
Quarter: 2004Q3

REPORT INFORMATION
  Report Type: 
  Country: None (occurrence: None)
  Receive Date: 20040907
  Receipt Date: 20030630
  Transmission Date: 20050211
  Serious: No
  Sender: FDA-Public Use
  Company Number: US-BRISTOL-MYERS SQUIBB COMPANY-12314662

PATIENT
  Age: 69 Year
  Sex: Female
  Weight: 54 kg

DRUGS (3)
  1. COUMADIN [Suspect]
     Indication: HEART VALVE REPLACEMENT
     Dosage: 2 DOSE SCHED REPORTED: ^1.5 MG ONCE WEEK ALTER. WITH 5 MG THE OTHER 6 DAYS^
  2. DILTIAZEM HCL TABS [Concomitant]
  3. LANOXIN [Concomitant]

REACTIONS (4)
  - ALOPECIA [None]
  - DIPLOPIA [None]
  - DIZZINESS [None]
  - OEDEMA PERIPHERAL [None]
